FAERS Safety Report 5674479-1 (Version None)
Quarter: 2008Q1

REPORT INFORMATION
  Report Type: 
  Country: None (occurrence: None)
  Receive Date: 20080317
  Receipt Date: 20080228
  Transmission Date: 20080703
  Serious: Yes (Life-Threatening, Disabling)
  Sender: FDA-Public Use
  Company Number: 2007JP000506

PATIENT
  Age: 72 Year
  Sex: Female

DRUGS (15)
  1. PROGRAF [Suspect]
     Indication: RHEUMATOID ARTHRITIS
     Dosage: 1.5 MG, UID/QD, ORAL; 1 MG, ORAL; 0.5 MG, UID/QD, ORAL; 1.5 MG, UID/QD, ORAL; 1 MG, UID/QD, ORAL
     Route: 048
     Dates: start: 20060216, end: 20060303
  2. PROGRAF [Suspect]
     Indication: RHEUMATOID ARTHRITIS
     Dosage: 1.5 MG, UID/QD, ORAL; 1 MG, ORAL; 0.5 MG, UID/QD, ORAL; 1.5 MG, UID/QD, ORAL; 1 MG, UID/QD, ORAL
     Route: 048
     Dates: start: 20060318, end: 20060516
  3. PROGRAF [Suspect]
     Indication: RHEUMATOID ARTHRITIS
     Dosage: 1.5 MG, UID/QD, ORAL; 1 MG, ORAL; 0.5 MG, UID/QD, ORAL; 1.5 MG, UID/QD, ORAL; 1 MG, UID/QD, ORAL
     Route: 048
     Dates: start: 20060517, end: 20060523
  4. PROGRAF [Suspect]
     Indication: RHEUMATOID ARTHRITIS
     Dosage: 1.5 MG, UID/QD, ORAL; 1 MG, ORAL; 0.5 MG, UID/QD, ORAL; 1.5 MG, UID/QD, ORAL; 1 MG, UID/QD, ORAL
     Route: 048
     Dates: start: 20060524, end: 20060929
  5. PROGRAF [Suspect]
     Indication: RHEUMATOID ARTHRITIS
     Dosage: 1.5 MG, UID/QD, ORAL; 1 MG, ORAL; 0.5 MG, UID/QD, ORAL; 1.5 MG, UID/QD, ORAL; 1 MG, UID/QD, ORAL
     Route: 048
     Dates: start: 20060930
  6. BUFFERIN [Suspect]
     Indication: ANGINA PECTORIS
     Dosage: 81 MG, UID/QD, ORAL
     Route: 048
     Dates: end: 20060304
  7. HYDERGINE (DIHYDROERGOCRYPTINE MESILATE, DIHYDROERGOCORNINE MESILATE) [Concomitant]
  8. CALMDOWN            (ALPRAZOLAM) TABLET [Concomitant]
  9. MEVALOTIN (PRAVASTATIN SODIUM) TABLET [Concomitant]
  10. AZULFIDINE EN TABLET [Concomitant]
  11. LUVOX (FLUVOXAMINE MALEATE) TABLET [Concomitant]
  12. RHYTHMY (RILMAZAFONE) TABLET [Concomitant]
  13. MAGNESIUM OXIDE (MAGNESIUM OXIDE) POWDER [Concomitant]
  14. RISPERDAL [Concomitant]
  15. LENDORMIN (BROTIZOLAM) TABLET [Concomitant]

REACTIONS (3)
  - CEREBRAL HAEMORRHAGE [None]
  - EPILEPSY [None]
  - INCORRECT DOSE ADMINISTERED [None]
